FAERS Safety Report 7962059 (Version 2)
Quarter: 2012Q4

REPORT INFORMATION
  Report Type: 
  Country: FR (occurrence: FR)
  Receive Date: 20110526
  Receipt Date: 20121019
  Transmission Date: 20130627
  Serious: Yes (Life-Threatening, Hospitalization)
  Sender: FDA-Public Use
  Company Number: FR-ROCHE-778346

PATIENT
  Age: 59 Year
  Sex: Female

DRUGS (13)
  1. ROVALCYTE [Suspect]
     Indication: ANTIVIRAL PROPHYLAXIS
     Route: 048
     Dates: start: 20100916, end: 20110301
  2. ROVALCYTE [Suspect]
     Indication: CYTOMEGALOVIRUS INFECTION
  3. BACTRIM [Suspect]
     Indication: CONGENITAL CYSTIC KIDNEY DISEASE
     Route: 065
     Dates: start: 201009, end: 201011
  4. BACTRIM [Suspect]
     Indication: URINARY TRACT INFECTION
  5. PROGRAF [Concomitant]
     Indication: CONGENITAL CYSTIC KIDNEY DISEASE
     Route: 065
     Dates: start: 201009, end: 201011
  6. CELLCEPT [Concomitant]
     Indication: CONGENITAL CYSTIC KIDNEY DISEASE
     Route: 065
  7. CORTANCYL [Concomitant]
     Indication: CONGENITAL CYSTIC KIDNEY DISEASE
     Route: 065
  8. CIPROFLOXACIN [Concomitant]
     Indication: URINARY TRACT INFECTION
  9. ROCEPHINE [Concomitant]
     Indication: URINARY TRACT INFECTION
  10. NEORAL [Concomitant]
     Route: 065
     Dates: start: 20110208, end: 20110226
  11. NEORAL [Concomitant]
     Route: 065
     Dates: start: 20110226
  12. PENTACARINAT AEROSOL [Concomitant]
  13. LEVOTHYROX [Concomitant]

REACTIONS (9)
  - Pericardial effusion [Recovered/Resolved]
  - Pleural effusion [Recovered/Resolved]
  - Gastric ulcer [Recovered/Resolved]
  - Weight decreased [Recovered/Resolved]
  - Pyrexia [Recovered/Resolved]
  - Aphthous stomatitis [Recovered/Resolved]
  - Diarrhoea [Recovered/Resolved]
  - Lymphopenia [Recovered/Resolved]
  - Neutropenia [Unknown]
